FAERS Safety Report 8277813-1 (Version None)
Quarter: 2012Q2

REPORT INFORMATION
  Report Type: 
  Country: None (occurrence: None)
  Receive Date: 20120412
  Receipt Date: 20120404
  Transmission Date: 20120825
  Serious: Yes (Death, Hospitalization, Other)
  Sender: FDA-Public Use
  Company Number: US-AMGEN-USASP2011044370

PATIENT
  Age: 54 Year
  Sex: Male
  Weight: 73.469 kg

DRUGS (27)
  1. XGEVA [Suspect]
     Indication: METASTASES TO BONE
     Dosage: 120 MG, Q4WK
     Route: 058
     Dates: start: 20110714, end: 20110714
  2. ARANESP [Suspect]
     Dosage: UNK
     Dates: start: 20110914
  3. ARANESP [Suspect]
     Dosage: UNK
     Dates: start: 20111202
  4. CALCIUM CARBONATE [Concomitant]
     Dosage: UNK, QID
  5. COLACE [Concomitant]
     Indication: CONSTIPATION
     Dosage: 100 MG, BID
     Route: 048
  6. THORAZINE [Concomitant]
     Indication: HICCUPS
     Dosage: 25 MG, PRN
     Dates: start: 20120326
  7. TYLENOL (CAPLET) [Concomitant]
     Dosage: 1000 MG, UNK
     Dates: start: 20121130
  8. ARANESP [Suspect]
     Indication: ANAEMIA
     Dosage: 40 MG, Q4WK
     Route: 058
     Dates: start: 20110728
  9. ARANESP [Suspect]
     Dosage: UNK UNK, ONE TIME DOSE
     Dates: start: 20110810
  10. ISORDIL [Concomitant]
     Dosage: 20 MG, UNK
     Route: 048
  11. ARANESP [Suspect]
  12. LORTAB [Concomitant]
     Indication: PAIN
     Dosage: 7.5 MG, PRN
     Route: 048
  13. VITAMIN D [Concomitant]
     Dosage: 400 MG, UNK
  14. HYDRALAZINE HCL [Concomitant]
     Indication: HYPERTENSION
     Dosage: 50 MG, BID
     Route: 048
  15. TAXOL [Concomitant]
     Dosage: 90 MG, UNK
     Dates: start: 20120305, end: 20120326
  16. EVEROLIMUS [Concomitant]
     Indication: RENAL CELL CARCINOMA
  17. SIMVASTATIN [Concomitant]
     Indication: BLOOD CHOLESTEROL ABNORMAL
     Dosage: 40 MG, UNK
     Route: 048
  18. COREG [Concomitant]
     Indication: HYPERTENSION
     Dosage: 50 MG, UNK
     Route: 048
  19. LASIX [Concomitant]
     Indication: SWELLING
     Dosage: 40 MG, PRN
     Route: 048
  20. PROCRIT [Suspect]
     Indication: ANAEMIA
     Dosage: 40000 IU, ONE TIME DOSE
     Route: 058
     Dates: start: 20110820, end: 20110820
  21. TORISEL [Concomitant]
     Dosage: 25 MG, UNK
     Route: 042
     Dates: start: 20110720, end: 20111109
  22. ISOSORBIDE DINITRATE [Concomitant]
     Indication: CARDIAC DISORDER
     Dosage: 20 MG, UNK
     Route: 048
  23. CALCIUM CARBONATE [Concomitant]
     Dosage: UNK UNK, QD
     Route: 041
     Dates: start: 20110801
  24. CALCIUM CARBONATE [Concomitant]
     Dosage: UNK
     Route: 048
     Dates: start: 20110810
  25. ARANESP [Suspect]
     Dosage: UNK
     Dates: start: 20111005
  26. ARANESP [Suspect]
     Dosage: UNK
     Dates: start: 20111102
  27. ARANESP [Suspect]
     Dosage: UNK
     Dates: end: 20111228

REACTIONS (38)
  - BLOOD URIC ACID INCREASED [None]
  - ASTHENIA [None]
  - HYPERTENSION [None]
  - DRUG INTERACTION [None]
  - TREMOR [None]
  - HYPOKALAEMIA [None]
  - DYSPNOEA [None]
  - ANAEMIA [None]
  - FLANK PAIN [None]
  - APHAGIA [None]
  - CENTRAL VENOUS CATHETERISATION [None]
  - DECREASED APPETITE [None]
  - SWELLING FACE [None]
  - HYPOTENSION [None]
  - RENAL FAILURE ACUTE [None]
  - METABOLIC ACIDOSIS [None]
  - HYPERKALAEMIA [None]
  - SINUS TACHYCARDIA [None]
  - PAIN [None]
  - GOUT [None]
  - VITAMIN B12 DECREASED [None]
  - DIARRHOEA [None]
  - OEDEMA PERIPHERAL [None]
  - PALPITATIONS [None]
  - HYPERPARATHYROIDISM SECONDARY [None]
  - BEDRIDDEN [None]
  - PAIN IN EXTREMITY [None]
  - TRANSFUSION [None]
  - LYMPHADENOPATHY [None]
  - RECTAL HAEMORRHAGE [None]
  - VOMITING [None]
  - HYPOCALCAEMIA [None]
  - MALIGNANT HYPERTENSION [None]
  - AZOTAEMIA [None]
  - GAIT DISTURBANCE [None]
  - NAUSEA [None]
  - DEHYDRATION [None]
  - FATIGUE [None]
